FAERS Safety Report 9439784 (Version 2)
Quarter: 2013Q3

REPORT INFORMATION
  Report Type: Report from Study
  Country: US (occurrence: US)
  Receive Date: 20130805
  Receipt Date: 20130902
  Transmission Date: 20140515
  Serious: Yes (Death)
  Sender: FDA-Public Use
  Company Number: US-ROCHE-1256266

PATIENT
  Sex: Female

DRUGS (1)
  1. ACTIVASE [Suspect]
     Indication: PRODUCT USED FOR UNKNOWN INDICATION
     Dosage: 100 MG  QUANTITY OF VIAL
     Route: 065
     Dates: start: 20130510

REACTIONS (3)
  - Respiratory failure [Fatal]
  - Cerebral artery embolism [Fatal]
  - Atrial fibrillation [Fatal]
